FAERS Safety Report 7040097-6 (Version None)
Quarter: 2010Q4

REPORT INFORMATION
  Report Type: 
  Country: None (occurrence: None)
  Receive Date: 20101012
  Receipt Date: 20100929
  Transmission Date: 20110411
  Serious: Yes (Other)
  Sender: FDA-Public Use
  Company Number: PHHY2010BR65357

PATIENT
  Sex: Male

DRUGS (4)
  1. FORASEQ [Suspect]
     Indication: EMPHYSEMA
     Dosage: 1 DF, BID
  2. OMEPRAZOLE [Concomitant]
     Indication: GASTRIC ULCER
     Dosage: 1 DF, BID
     Route: 048
  3. PURAN [Concomitant]
     Indication: THYROID DISORDER
     Dosage: 1 DF DAILY
  4. ARADOIS [Concomitant]
     Indication: BLOOD PRESSURE
     Dosage: 1 DF DAILY
     Route: 048

REACTIONS (3)
  - HEAD AND NECK CANCER [None]
  - LIP AND/OR ORAL CAVITY CANCER [None]
  - SURGERY [None]
